FAERS Safety Report 10233498 (Version 1)
Quarter: 2014Q2

REPORT INFORMATION
  Report Type: Report from Study
  Country: CA (occurrence: CA)
  Receive Date: 20140612
  Receipt Date: 20140612
  Transmission Date: 20141212
  Serious: Yes (Hospitalization)
  Sender: FDA-Public Use
  Company Number: CA-JNJFOC-20140604526

PATIENT
  Sex: Female
  Weight: 86.4 kg

DRUGS (1)
  1. REMICADE [Suspect]
     Indication: CROHN^S DISEASE
     Route: 042

REACTIONS (5)
  - Loss of consciousness [Unknown]
  - Cerebral infarction [Unknown]
  - Urosepsis [Unknown]
  - Cerebral infarction [Unknown]
  - Septic shock [Unknown]
